FAERS Safety Report 25252848 (Version 1)
Quarter: 2025Q2

REPORT INFORMATION
  Report Type: Spontaneous
  Country: US (occurrence: None)
  Receive Date: 20250429
  Receipt Date: 20250429
  Transmission Date: 20250717
  Serious: No
  Sender: AXSOME THERAPEUTICS, INC.
  Company Number: US-Axsome Therapeutics, Inc.-AXS202503-000382

PATIENT
  Age: 65 Year
  Sex: Male

DRUGS (4)
  1. AUVELITY [Suspect]
     Active Substance: BUPROPION HYDROCHLORIDE\DEXTROMETHORPHAN HYDROBROMIDE
     Indication: Product used for unknown indication
     Route: 065
  2. DUPIXENT [Suspect]
     Active Substance: DUPILUMAB
     Indication: Product used for unknown indication
     Route: 065
     Dates: start: 202405
  3. VIVITROL [Suspect]
     Active Substance: NALTREXONE
     Route: 065
     Dates: start: 202405
  4. VRAYLAR [Suspect]
     Active Substance: CARIPRAZINE
     Indication: Product used for unknown indication
     Route: 065
     Dates: start: 202405

REACTIONS (2)
  - Condition aggravated [Unknown]
  - Somnolence [Unknown]

NARRATIVE: CASE EVENT DATE: 20240301
